FAERS Safety Report 8484356-9 (Version None)
Quarter: 2012Q3

REPORT INFORMATION
  Report Type: 
  Country: None (occurrence: None)
  Receive Date: 20120703
  Receipt Date: 20120618
  Transmission Date: 20120928
  Serious: Yes (Other)
  Sender: FDA-Public Use
  Company Number: US-ASTRAZENECA-2012SE40739

PATIENT

DRUGS (5)
  1. CYMBALTA [Concomitant]
  2. PLAQUENIL [Concomitant]
  3. PREDNISONE TAB [Concomitant]
     Dosage: DAILY.
  4. TRAZODONE HCL [Concomitant]
  5. NEXIUM [Suspect]
     Route: 048

REACTIONS (2)
  - SYSTEMIC LUPUS ERYTHEMATOSUS [None]
  - SJOGREN'S SYNDROME [None]
